FAERS Safety Report 9103150 (Version 1)
Quarter: 2013Q1

REPORT INFORMATION
  Report Type: Spontaneous
  Country: MX (occurrence: MX)
  Receive Date: 20130219
  Receipt Date: 20130219
  Transmission Date: 20140127
  Serious: Yes (Other)
  Sender: FDA-Public Use
  Company Number: MX-ELI_LILLY_AND_COMPANY-MX201302004725

PATIENT
  Age: 55 Year
  Sex: Female

DRUGS (1)
  1. EVISTA [Suspect]
     Indication: OSTEOPOROSIS
     Dosage: UNK, DAILY

REACTIONS (10)
  - Syncope [Unknown]
  - Paroxysmal arrhythmia [Unknown]
  - Fatigue [Unknown]
  - Insomnia [Unknown]
  - Mental impairment [Unknown]
  - Hyporeflexia [Unknown]
  - Visual acuity reduced [Unknown]
  - Gait disturbance [Unknown]
  - Headache [Unknown]
  - Depression [Unknown]
